FAERS Safety Report 9819518 (Version 2)
Quarter: 2014Q1

REPORT INFORMATION
  Report Type: Spontaneous
  Country: AR (occurrence: AR)
  Receive Date: 20140115
  Receipt Date: 20140312
  Transmission Date: 20141002
  Serious: Yes (Hospitalization, Other)
  Sender: FDA-Public Use
  Company Number: PHHY2014AR004230

PATIENT
  Sex: Female

DRUGS (2)
  1. TEGRETOL [Suspect]
     Indication: CONVULSION
     Dosage: 2 DF, DAILY
     Route: 048
     Dates: start: 2003, end: 2011
  2. TEGRETOL [Suspect]
     Indication: DYSKINESIA

REACTIONS (5)
  - Convulsion [Unknown]
  - Dysphagia [Not Recovered/Not Resolved]
  - Visual impairment [Not Recovered/Not Resolved]
  - Motor dysfunction [Not Recovered/Not Resolved]
  - Speech disorder [Not Recovered/Not Resolved]
